FAERS Safety Report 20789421 (Version 1)
Quarter: 2022Q2

REPORT INFORMATION
  Report Type: Spontaneous
  Country: US (occurrence: None)
  Receive Date: 20220504
  Receipt Date: 20220504
  Transmission Date: 20220721
  Serious: Yes (Other)
  Sender: FDA-Public Use
  Company Number: None

PATIENT
  Age: 18 Year
  Sex: Female
  Weight: 74.25 kg

DRUGS (7)
  1. DESVENLAFAXINE SUCCINATE [Suspect]
     Active Substance: DESVENLAFAXINE SUCCINATE
     Indication: Major depression
     Dosage: OTHER QUANTITY : 1 CAPSULE(S);?
     Route: 048
     Dates: start: 20220423, end: 20220425
  2. DESVENLAFAXINE SUCCINATE [Suspect]
     Active Substance: DESVENLAFAXINE SUCCINATE
     Indication: Generalised anxiety disorder
  3. VYVANSE [Concomitant]
     Active Substance: LISDEXAMFETAMINE DIMESYLATE
  4. SPIRONOLACTONE [Concomitant]
  5. VITAMINS [Concomitant]
     Active Substance: VITAMINS
  6. I-theanine [Concomitant]
  7. I-tyrosie [Concomitant]

REACTIONS (10)
  - Therapy change [None]
  - Suicidal ideation [None]
  - Anxiety [None]
  - Agitation [None]
  - Blood pressure increased [None]
  - Palpitations [None]
  - Anger [None]
  - Intentional self-injury [None]
  - Therapy cessation [None]
  - Anxiety [None]

NARRATIVE: CASE EVENT DATE: 20220423
